FAERS Safety Report 6100647-0 (Version None)
Quarter: 2009Q1

REPORT INFORMATION
  Report Type: 
  Country: None (occurrence: None)
  Receive Date: 20090227
  Receipt Date: 20090227
  Transmission Date: 20090719
  Serious: Yes (Life-Threatening)
  Sender: FDA-Public Use
  Company Number: None

PATIENT
  Sex: Female
  Weight: 91.6266 kg

DRUGS (1)
  1. CEPHALEXIN [Suspect]
     Indication: BURN INFECTION
     Dosage: 500 MG 4 X DAY PO
     Route: 048
     Dates: start: 20090223, end: 20090224

REACTIONS (5)
  - DIZZINESS [None]
  - JAW DISORDER [None]
  - LOCAL SWELLING [None]
  - SWELLING [None]
  - URTICARIA [None]
